FAERS Safety Report 15051626 (Version 1)
Quarter: 2018Q2

REPORT INFORMATION
  Report Type: Spontaneous
  Country: US (occurrence: US)
  Receive Date: 20180622
  Receipt Date: 20180622
  Transmission Date: 20180711
  Serious: Yes (Other)
  Sender: FDA-Public Use
  Company Number: US-JUBILANT CADISTA PHARMACEUTICALS-2018JUB00240

PATIENT
  Age: 7 Month
  Sex: Female

DRUGS (3)
  1. PREDNISONE. [Suspect]
     Active Substance: PREDNISONE
     Indication: INFANTILE SPASMS
     Route: 065
  2. ADRENOCORTICOTROPIC HORMONE [Suspect]
     Active Substance: CORTICOTROPIN
     Indication: INFANTILE SPASMS
     Dosage: ^HIGH DOSE^
     Route: 065
  3. VIGABATRIN. [Concomitant]
     Active Substance: VIGABATRIN
     Indication: INFANTILE SPASMS

REACTIONS (1)
  - Epidural lipomatosis [Recovering/Resolving]
